FAERS Safety Report 18077408 (Version 4)
Quarter: 2020Q3

REPORT INFORMATION
  Report Type: Report from Study
  Country: US (occurrence: US)
  Receive Date: 20200728
  Receipt Date: 20200821
  Transmission Date: 20201103
  Serious: Yes (Other)
  Sender: FDA-Public Use
  Company Number: US-DOVA PHARMACEUTICALS INC.-DOV-000569

PATIENT
  Sex: Female

DRUGS (3)
  1. DOPTELET [Suspect]
     Active Substance: AVATROMBOPAG MALEATE
     Dosage: 40 MG, QD
     Route: 048
     Dates: start: 20200618, end: 20200811
  2. DOPTELET [Suspect]
     Active Substance: AVATROMBOPAG MALEATE
     Indication: IMMUNE THROMBOCYTOPENIA
     Dosage: 20 MG, QD
     Route: 048
     Dates: start: 20190701
  3. NPLATE [Concomitant]
     Active Substance: ROMIPLOSTIM
     Indication: PRODUCT USED FOR UNKNOWN INDICATION
     Dosage: 1 INJECTION PER WEEK

REACTIONS (13)
  - Peripheral swelling [Unknown]
  - Haemorrhoids [Unknown]
  - Constipation [Unknown]
  - Headache [Unknown]
  - Product dose omission issue [Unknown]
  - Haematochezia [Unknown]
  - Arthralgia [Unknown]
  - Drug ineffective [Unknown]
  - Urinary tract infection [Unknown]
  - Rhinorrhoea [Unknown]
  - Muscular weakness [Unknown]
  - Contusion [Unknown]
  - Drug effect less than expected [Unknown]
